FAERS Safety Report 6832023-7 (Version None)
Quarter: 2010Q3

REPORT INFORMATION
  Report Type: 
  Country: None (occurrence: None)
  Receive Date: 20100712
  Receipt Date: 20100629
  Transmission Date: 20110219
  Serious: Yes (Death, Life-Threatening)
  Sender: FDA-Public Use
  Company Number: NL-ROCHE-713014

PATIENT
  Sex: Female
  Weight: 63 kg

DRUGS (8)
  1. XELODA [Suspect]
     Dosage: FREQUENCY: QD FOR 2 WEEKS, 1 WEEK STOP. THERAPY DISCONTINUED.
     Route: 048
     Dates: start: 20100422
  2. DIOVAN [Concomitant]
     Route: 048
  3. EMCOR [Concomitant]
     Route: 048
  4. FOSAMAX [Concomitant]
     Dosage: DRUG REPORTED: ALENDROIN ACID
     Route: 048
  5. ACETYLSALICYLIC ACID [Concomitant]
     Route: 048
  6. QUESTRAN [Concomitant]
     Dosage: FREQUENCY: B.I.D OR Q.D.
     Route: 048
     Dates: start: 20100313
  7. PYRIDOXINE HCL [Concomitant]
     Route: 048
     Dates: start: 20100313
  8. CALCICHEW [Concomitant]
     Route: 048

REACTIONS (3)
  - DEATH [None]
  - DEHYDRATION [None]
  - DIARRHOEA [None]
